FAERS Safety Report 7928319-8 (Version None)
Quarter: 2011Q4

REPORT INFORMATION
  Report Type: 
  Country: None (occurrence: None)
  Receive Date: 20111118
  Receipt Date: 20111110
  Transmission Date: 20120403
  Serious: Yes (Hospitalization)
  Sender: FDA-Public Use
  Company Number: NL-SANOFI-AVENTIS-2011SA065381

PATIENT
  Age: 47 Year
  Sex: Female

DRUGS (3)
  1. TAXOTERE [Suspect]
     Route: 065
     Dates: start: 20110727, end: 20110727
  2. ADRIAMYCIN PFS [Concomitant]
     Route: 065
     Dates: start: 20110727
  3. CYCLOPHOSPHAMIDE [Concomitant]
     Route: 065
     Dates: start: 20110727

REACTIONS (5)
  - VASCULITIS [None]
  - COLITIS ISCHAEMIC [None]
  - GASTROINTESTINAL DISORDER [None]
  - DIARRHOEA [None]
  - ABDOMINAL PAIN [None]
